FAERS Safety Report 4868088-1 (Version None)
Quarter: 2005Q4

REPORT INFORMATION
  Report Type: 
  Country: None (occurrence: None)
  Receive Date: 20051229
  Receipt Date: 20051221
  Transmission Date: 20060501
  Serious: Yes (Death)
  Sender: FDA-Public Use
  Company Number: FR-JNJFOC-20051204599

PATIENT
  Age: 10 Month
  Sex: Male

DRUGS (1)
  1. IMODIUM [Suspect]
     Indication: GASTROENTERITIS
     Route: 048

REACTIONS (2)
  - DEATH [None]
  - DEHYDRATION [None]
